FAERS Safety Report 7592107-5 (Version None)
Quarter: 2011Q3

REPORT INFORMATION
  Report Type: 
  Country: None (occurrence: None)
  Receive Date: 20110705
  Receipt Date: 20110705
  Transmission Date: 20111222
  Serious: Yes (Other)
  Sender: FDA-Public Use
  Company Number: None

PATIENT
  Age: 75 Year
  Sex: Male
  Weight: 97.5234 kg

DRUGS (1)
  1. LIPITOR [Suspect]
     Indication: BLOOD CHOLESTEROL
     Dosage: 1 80MG ONCE A DAY PO
     Route: 048
     Dates: start: 20110601, end: 20110605

REACTIONS (2)
  - MYALGIA [None]
  - ARTHRALGIA [None]
